FAERS Safety Report 9290680 (Version 2)
Quarter: 2014Q2

REPORT INFORMATION
  Report Type: Spontaneous
  Country: US (occurrence: US)
  Receive Date: 20130515
  Receipt Date: 20140428
  Transmission Date: 20141212
  Serious: Yes (Congenital Anomaly, Other)
  Sender: FDA-Public Use
  Company Number: US-PFIZER INC-2013148021

PATIENT
  Sex: Female

DRUGS (2)
  1. ZOLOFT [Suspect]
     Dosage: UNK
     Route: 064
     Dates: start: 2002
  2. SERTRALINE HCL [Suspect]
     Dosage: UNK
     Route: 064
     Dates: start: 2002

REACTIONS (5)
  - Maternal exposure during pregnancy [Unknown]
  - Pulmonary artery stenosis congenital [Unknown]
  - Pulmonary valve stenosis congenital [Unknown]
  - Atrial septal defect [Unknown]
  - Premature baby [Unknown]
